FAERS Safety Report 15958540 (Version 1)
Quarter: 2019Q1

REPORT INFORMATION
  Report Type: Spontaneous
  Country: US (occurrence: US)
  Receive Date: 20190213
  Receipt Date: 20190213
  Transmission Date: 20190417
  Serious: No
  Sender: FDA-Public Use
  Company Number: US-PURDUE-USA-2018-0144978

PATIENT
  Age: 84 Year
  Sex: Female

DRUGS (3)
  1. BUTRANS [Suspect]
     Active Substance: BUPRENORPHINE
     Indication: NERVE INJURY
     Dosage: 5 MCG/HR, WEEKLY
     Route: 062
     Dates: start: 201809
  2. HYDROCODONE BITARTRATE (SIMILAR TO NDA 206627) [Suspect]
     Active Substance: HYDROCODONE BITARTRATE
     Dosage: 2 TABLET, DAILY
     Route: 048
     Dates: start: 20181011, end: 20181011
  3. HYDROCODONE BITARTRATE (SIMILAR TO NDA 206627) [Suspect]
     Active Substance: HYDROCODONE BITARTRATE
     Indication: NERVE INJURY
     Dosage: 4 TABLET, DAILY
     Route: 048

REACTIONS (2)
  - Dizziness [Not Recovered/Not Resolved]
  - Constipation [Not Recovered/Not Resolved]

NARRATIVE: CASE EVENT DATE: 201809
